FAERS Safety Report 7671759-5 (Version None)
Quarter: 2011Q3

REPORT INFORMATION
  Report Type: 
  Country: None (occurrence: None)
  Receive Date: 20110804
  Receipt Date: 20110802
  Transmission Date: 20111222
  Serious: Yes (Disabling, Other)
  Sender: FDA-Public Use
  Company Number: ACO_23521_2011

PATIENT
  Age: 74 Year
  Sex: Female
  Weight: 80.7 kg

DRUGS (15)
  1. AMOXICILLIN [Concomitant]
  2. SAVELLA [Suspect]
     Indication: PAIN
     Dosage: ORAL
     Route: 048
     Dates: start: 20110322, end: 20110323
  3. COPAXONE [Concomitant]
  4. AMPYRA [Suspect]
     Indication: GAIT DISTURBANCE
     Dosage: 10MG, BID,ORAL
     Route: 048
     Dates: start: 20110401, end: 20110401
  5. THYROID TAB [Concomitant]
  6. DICYCLOMINE [Concomitant]
  7. CALCIUM (CALCIUM) [Concomitant]
  8. OMEPRAZOLE [Concomitant]
  9. FISH OIL (FISH OIL) [Concomitant]
  10. HYDROCORTONE [Concomitant]
  11. NAMENDA [Concomitant]
  12. ARICEPT [Concomitant]
  13. LYRICA [Concomitant]
  14. ASPIRIN [Concomitant]
  15. MAGNESIUM (MAGNESIUM) [Concomitant]

REACTIONS (2)
  - DYSKINESIA [None]
  - TREMOR [None]
